FAERS Safety Report 7256316-7 (Version None)
Quarter: 2011Q1

REPORT INFORMATION
  Report Type: 
  Country: None (occurrence: None)
  Receive Date: 20110129
  Receipt Date: 20100820
  Transmission Date: 20110831
  Serious: No
  Sender: FDA-Public Use
  Company Number: US-ABBOTT-10P-163-0639606-00

PATIENT
  Sex: Male
  Weight: 81.72 kg

DRUGS (7)
  1. DILTIAZEM [Concomitant]
     Indication: CARDIAC DISORDER
  2. DIGOXIN [Concomitant]
     Indication: PALPITATIONS
  3. LISINOPRIL [Concomitant]
     Indication: HYPERTENSION
  4. DIGOXIN [Concomitant]
     Indication: HEART RATE IRREGULAR
  5. LEFLUNOMIDE [Concomitant]
     Indication: ARTHRITIS
  6. PREDNISONE [Concomitant]
     Indication: PRODUCT USED FOR UNKNOWN INDICATION
  7. HUMIRA [Suspect]
     Indication: RHEUMATOID ARTHRITIS
     Dates: start: 20050101

REACTIONS (10)
  - LIP PAIN [None]
  - FAECES PALE [None]
  - TOOTH INFECTION [None]
  - DEVICE BREAKAGE [None]
  - AGEUSIA [None]
  - NERVE INJURY [None]
  - HYPOAESTHESIA ORAL [None]
  - OSTEOMYELITIS [None]
  - PAIN [None]
  - PAIN IN JAW [None]
